FAERS Safety Report 6517501-2 (Version None)
Quarter: 2009Q4

REPORT INFORMATION
  Report Type: 
  Country: None (occurrence: None)
  Receive Date: 20091224
  Receipt Date: 20091221
  Transmission Date: 20100525
  Serious: Yes (Hospitalization)
  Sender: FDA-Public Use
  Company Number: US-WYE-H12748909

PATIENT
  Sex: Female
  Weight: 85.81 kg

DRUGS (2)
  1. EFFEXOR XR [Suspect]
     Indication: ANXIETY
     Dosage: 325 MG, FREQUENCY UNSPECIFIED
     Route: 048
     Dates: start: 20030101
  2. EFFEXOR XR [Suspect]
     Indication: DEPRESSION

REACTIONS (3)
  - DRUG WITHDRAWAL SYNDROME [None]
  - PARAESTHESIA [None]
  - PERITONITIS [None]
